FAERS Safety Report 19392596 (Version 3)
Quarter: 2021Q3

REPORT INFORMATION
  Report Type: Spontaneous
  Country: US (occurrence: US)
  Receive Date: 20210609
  Receipt Date: 20210721
  Transmission Date: 20211014
  Serious: Yes (Hospitalization, Other)
  Sender: FDA-Public Use
  Company Number: US-ASTRAZENECA-2021A492480

PATIENT
  Age: 651 Month
  Sex: Female
  Weight: 116.1 kg

DRUGS (36)
  1. HYDROCODONE/PARACETAMOL [Concomitant]
     Active Substance: ACETAMINOPHEN\HYDROCODONE BITARTRATE
  2. CLOTRIMAZOLE AND BETAMETHASONE DIPROPIONATE [Concomitant]
     Active Substance: BETAMETHASONE\BETAMETHASONE DIPROPIONATE\CLOTRIMAZOLE
  3. BELSOMRA [Concomitant]
     Active Substance: SUVOREXANT
  4. MOTEGRITY [Concomitant]
     Active Substance: PRUCALOPRIDE SUCCINATE
  5. ATORVASTATIN [Concomitant]
     Active Substance: ATORVASTATIN
  6. NITROSTAT [Concomitant]
     Active Substance: NITROGLYCERIN
  7. SUCRALFATE. [Concomitant]
     Active Substance: SUCRALFATE
  8. CYANOCOBALAMIN. [Concomitant]
     Active Substance: CYANOCOBALAMIN
  9. BREO ELLIPTA [Concomitant]
     Active Substance: FLUTICASONE FUROATE\VILANTEROL TRIFENATATE
  10. CYCLOBENZAPRINE. [Concomitant]
     Active Substance: CYCLOBENZAPRINE
  11. TRULICITY [Concomitant]
     Active Substance: DULAGLUTIDE
  12. POTASSIUM CHLORIDE. [Concomitant]
     Active Substance: POTASSIUM CHLORIDE
  13. MICONAZOLE NITRATE. [Concomitant]
     Active Substance: MICONAZOLE NITRATE
  14. GLIPIZIDE ER [Concomitant]
     Active Substance: GLIPIZIDE
     Indication: DIABETES MELLITUS
  15. ASPIRIN. [Concomitant]
     Active Substance: ASPIRIN
  16. LIDOCAINE. [Concomitant]
     Active Substance: LIDOCAINE
  17. SENEXON?S [Concomitant]
     Active Substance: DOCUSATE SODIUM\SENNOSIDES A AND B
  18. VASCEPA [Concomitant]
     Active Substance: ICOSAPENT ETHYL
  19. VITAMIN D2 [Concomitant]
     Active Substance: ERGOCALCIFEROL
  20. DEXILANT [Concomitant]
     Active Substance: DEXLANSOPRAZOLE
  21. NARCAN [Concomitant]
     Active Substance: NALOXONE HYDROCHLORIDE
  22. BYDUREON [Suspect]
     Active Substance: EXENATIDE
     Indication: DIABETES MELLITUS
     Dosage: 2.0MG AS REQUIRED
     Route: 065
     Dates: start: 20151124, end: 20210610
  23. GABAPENTIN. [Concomitant]
     Active Substance: GABAPENTIN
  24. MUCINEX [Concomitant]
     Active Substance: GUAIFENESIN
  25. FLUTICASONE PROPRIONATE [Concomitant]
     Active Substance: FLUTICASONE PROPIONATE
  26. BYDUREON [Concomitant]
     Active Substance: EXENATIDE
  27. COUMADIN [Concomitant]
     Active Substance: WARFARIN SODIUM
  28. LINZESS [Concomitant]
     Active Substance: LINACLOTIDE
  29. INCRUSE ELLIPTA [Concomitant]
     Active Substance: UMECLIDINIUM BROMIDE
  30. PROMETHAZINE [Concomitant]
     Active Substance: PROMETHAZINE HYDROCHLORIDE
  31. SPIRONOLACTONE. [Concomitant]
     Active Substance: SPIRONOLACTONE
  32. LEVOCETIRIZINE [Concomitant]
     Active Substance: LEVOCETIRIZINE
  33. ALBUTEROL SULFATE. [Concomitant]
     Active Substance: ALBUTEROL SULFATE
  34. DOXYCYCLINE HYCLATE. [Concomitant]
     Active Substance: DOXYCYCLINE HYCLATE
  35. WARFARIN [Concomitant]
     Active Substance: WARFARIN
  36. XYZAL [Concomitant]
     Active Substance: LEVOCETIRIZINE DIHYDROCHLORIDE

REACTIONS (17)
  - Product use issue [Not Recovered/Not Resolved]
  - Device leakage [Unknown]
  - Colon cancer recurrent [Recovered/Resolved]
  - Blood potassium increased [Recovered/Resolved]
  - Glycosylated haemoglobin abnormal [Unknown]
  - Memory impairment [Not Recovered/Not Resolved]
  - Dysstasia [Recovered/Resolved]
  - Hypertension [Unknown]
  - Lymphoedema [Unknown]
  - Blood glucose fluctuation [Unknown]
  - Back pain [Unknown]
  - Renal failure [Recovered/Resolved]
  - Blood pressure decreased [Recovered/Resolved]
  - Peripheral venous disease [Unknown]
  - Hernia [Recovered/Resolved]
  - Heart rate abnormal [Recovered/Resolved]
  - Dysuria [Unknown]

NARRATIVE: CASE EVENT DATE: 202011
